FAERS Safety Report 18066176 (Version 2)
Quarter: 2022Q2

REPORT INFORMATION
  Report Type: Spontaneous
  Country: CH (occurrence: CH)
  Receive Date: 20200724
  Receipt Date: 20220407
  Transmission Date: 20220721
  Serious: Yes (Other)
  Sender: FDA-Public Use
  Company Number: CH-SM-2020-14489

PATIENT
  Age: 86 Year
  Sex: Female

DRUGS (17)
  1. ENOXAPARIN SODIUM [Suspect]
     Active Substance: ENOXAPARIN SODIUM
     Indication: Thrombosis prophylaxis
     Dosage: 40 MG, QD
     Route: 058
     Dates: start: 20200610, end: 20200619
  2. SULFAMETHOXAZOLE\TRIMETHOPRIM [Suspect]
     Active Substance: SULFAMETHOXAZOLE\TRIMETHOPRIM
     Indication: Pyelonephritis acute
     Dosage: 160 MG, BID
     Route: 048
     Dates: start: 20200612, end: 20200619
  3. CEFTRIAXONE [Suspect]
     Active Substance: CEFTRIAXONE
     Indication: Pyelonephritis acute
     Dosage: 2 G, QD
     Route: 042
     Dates: start: 20200610, end: 20200612
  4. ACETAMINOPHEN [Suspect]
     Active Substance: ACETAMINOPHEN
     Dosage: MAX 3X/D ; AS NECESSARY
     Route: 048
     Dates: start: 20200610, end: 20200619
  5. AMLODIPINE [Suspect]
     Active Substance: AMLODIPINE BESYLATE
     Indication: Hypertension
     Dosage: 5 MG, QD
     Route: 048
     Dates: start: 20200617, end: 20200619
  6. ASPIRIN [Concomitant]
     Active Substance: ASPIRIN
     Dates: start: 20200615, end: 20200619
  7. FOLIC ACID [Concomitant]
     Active Substance: FOLIC ACID
     Dosage: UNK
     Dates: start: 20200611
  8. EUTHYROX [Concomitant]
     Active Substance: LEVOTHYROXINE SODIUM
     Dates: start: 20200613, end: 20200619
  9. COBAMAMIDE [Concomitant]
     Active Substance: COBAMAMIDE
     Dates: start: 20200611, end: 20200619
  10. CHOLECALCIFEROL [Concomitant]
     Active Substance: CHOLECALCIFEROL
     Dates: start: 20200612, end: 20200619
  11. NIZORAL [Concomitant]
     Active Substance: KETOCONAZOLE
     Dates: start: 20200613, end: 20200619
  12. SILVER NITRATE [Concomitant]
     Active Substance: SILVER NITRATE
     Dates: start: 20200613, end: 20200619
  13. FIG FRUIT OIL\SORBITOL [Concomitant]
     Active Substance: FIG FRUIT OIL\SORBITOL
     Dosage: UNK, PRN
     Dates: start: 20200610, end: 20200619
  14. ZOLPIDEM [Concomitant]
     Active Substance: ZOLPIDEM TARTRATE
     Dosage: UNK
     Dates: end: 20200609
  15. ZOLPIDEM [Concomitant]
     Active Substance: ZOLPIDEM TARTRATE
     Dosage: UNK, PRN
     Dates: start: 20200610, end: 20200619
  16. BETAHISTINE [Concomitant]
     Active Substance: BETAHISTINE
     Dates: end: 20200609
  17. NYSTATIN [Concomitant]
     Active Substance: NYSTATIN
     Dates: start: 20200611, end: 20200611

REACTIONS (1)
  - Rash maculo-papular [Recovered/Resolved]

NARRATIVE: CASE EVENT DATE: 20200619
